FAERS Safety Report 9772635 (Version 2)
Quarter: 2013Q4

REPORT INFORMATION
  Report Type: Report from Study
  Country: JP (occurrence: JP)
  Receive Date: 20131219
  Receipt Date: 20131219
  Transmission Date: 20140711
  Serious: Yes (Hospitalization)
  Sender: FDA-Public Use
  Company Number: JP-ABBVIE-13P-087-1097373-00

PATIENT
  Age: 45 Year
  Sex: Female
  Weight: 74.5 kg

DRUGS (21)
  1. HUMIRA [Suspect]
     Indication: RHEUMATOID ARTHRITIS
     Route: 058
     Dates: start: 20120913, end: 20121122
  2. BUCILLAMINE [Concomitant]
     Indication: RHEUMATOID ARTHRITIS
     Route: 048
     Dates: start: 20080718, end: 20121110
  3. DICLOFENAC SODIUM [Concomitant]
     Indication: RHEUMATOID ARTHRITIS
     Route: 048
     Dates: start: 20080718
  4. MISOPROSTOL [Concomitant]
     Indication: PROPHYLAXIS AGAINST GASTROINTESTINAL ULCER
     Route: 048
     Dates: start: 20080718
  5. METHOTREXATE [Concomitant]
     Indication: RHEUMATOID ARTHRITIS
     Route: 048
     Dates: start: 20080821, end: 20121130
  6. RISEDRONATE SODIUM [Concomitant]
     Indication: PRODUCT USED FOR UNKNOWN INDICATION
     Route: 048
     Dates: start: 20110331
  7. URSODEOXYCHOLIC ACID [Concomitant]
     Indication: CHOLELITHIASIS
     Route: 048
     Dates: start: 20120719
  8. PREGABALIN [Concomitant]
     Indication: NEUROPATHY PERIPHERAL
     Route: 048
     Dates: start: 20121109, end: 20130103
  9. PREDNISOLONE [Concomitant]
     Indication: RHEUMATOID ARTHRITIS
     Route: 048
     Dates: start: 20080801
  10. PREDNISOLONE [Concomitant]
  11. PREDNISOLONE [Concomitant]
     Dates: start: 20121109, end: 20130103
  12. PREDNISOLONE [Concomitant]
     Dates: start: 20130104
  13. FEXOFENADINE HYDROCHLORIDE [Concomitant]
     Indication: ALLERGY PROPHYLAXIS
     Dosage: TWICE BEFORE INJECTION
     Route: 048
     Dates: start: 20121011, end: 20130103
  14. CHLORPHENIRAMINE MALEATE [Concomitant]
     Indication: ALLERGY PROPHYLAXIS
     Route: 048
  15. ZOLPIDEM TARTRATE [Concomitant]
     Indication: INSOMNIA
     Route: 048
  16. MAGNESIUM OXIDE [Concomitant]
     Indication: CONSTIPATION
     Route: 048
  17. ACETAMINOPHEN [Concomitant]
     Indication: RHEUMATOID ARTHRITIS
     Route: 048
  18. ALOGLIPTIN BENZOATE [Concomitant]
     Indication: PRODUCT USED FOR UNKNOWN INDICATION
     Route: 048
  19. MONTELUKAST SODIUM [Concomitant]
     Indication: PRODUCT USED FOR UNKNOWN INDICATION
     Route: 048
  20. LANSOPRAZOLE [Concomitant]
     Indication: PROPHYLAXIS
     Route: 048
  21. THEOPHYLLINE [Concomitant]
     Indication: PRODUCT USED FOR UNKNOWN INDICATION
     Route: 048

REACTIONS (3)
  - Cholelithiasis [Recovering/Resolving]
  - Cholecystitis [Recovering/Resolving]
  - General physical health deterioration [Unknown]
